FAERS Safety Report 6922578-6 (Version None)
Quarter: 2010Q3

REPORT INFORMATION
  Report Type: 
  Country: None (occurrence: None)
  Receive Date: 20100813
  Receipt Date: 20100729
  Transmission Date: 20110219
  Serious: Yes (Hospitalization, Other)
  Sender: FDA-Public Use
  Company Number: PHHY2010JP48118

PATIENT
  Age: 68 Year
  Sex: Female

DRUGS (5)
  1. TOFRANIL [Suspect]
     Indication: BIPOLAR DISORDER
     Dosage: 30 MG, UNK
  2. LITHIUM CARBONATE [Suspect]
     Indication: BIPOLAR DISORDER
     Dosage: 300 MG, UNK
  3. LEVOMEPROMAZINE [Suspect]
     Dosage: 1 MG, UNK
  4. RISPERIDONE [Suspect]
     Indication: BIPOLAR DISORDER
     Dosage: 1 MG, UNK
  5. DANTRIUM [Suspect]
     Dosage: 80 MG, QD

REACTIONS (20)
  - APHASIA [None]
  - AUTONOMIC NERVOUS SYSTEM IMBALANCE [None]
  - BLOOD CREATINE PHOSPHOKINASE INCREASED [None]
  - COGNITIVE DISORDER [None]
  - CONSCIOUSNESS FLUCTUATING [None]
  - DEMENTIA WITH LEWY BODIES [None]
  - DISORIENTATION [None]
  - DISTURBANCE IN ATTENTION [None]
  - EXTRAPYRAMIDAL DISORDER [None]
  - HALLUCINATION, VISUAL [None]
  - HYPERHIDROSIS [None]
  - JUDGEMENT IMPAIRED [None]
  - MEMORY IMPAIRMENT [None]
  - NEUROLEPTIC MALIGNANT SYNDROME [None]
  - PERSECUTORY DELUSION [None]
  - PSYCHOMOTOR SKILLS IMPAIRED [None]
  - PYREXIA [None]
  - STUPOR [None]
  - THROMBOCYTOPENIA [None]
  - TREMOR [None]
